FAERS Safety Report 5154736-8 (Version None)
Quarter: 2006Q4

REPORT INFORMATION
  Report Type: 
  Country: None (occurrence: None)
  Receive Date: 20061115
  Receipt Date: 20061115
  Transmission Date: 20070319
  Serious: No
  Sender: FDA-Public Use
  Company Number: None

PATIENT
  Age: 61 Year
  Sex: Male
  Weight: 124.7392 kg

DRUGS (2)
  1. PREGABALIN 50 MG [Suspect]
     Indication: DIABETIC NEUROPATHY
     Dosage: 50 MG 1 TAB TID PO
     Route: 048
     Dates: start: 20060911, end: 20060927
  2. DULOXETINE 30 MG [Suspect]
     Indication: DIABETIC NEUROPATHY
     Dosage: 30 MG 1 CAP DAILY PO
     Route: 048
     Dates: start: 20060927, end: 20061103

REACTIONS (3)
  - OEDEMA PERIPHERAL [None]
  - RASH PRURITIC [None]
  - WEIGHT INCREASED [None]
